FAERS Safety Report 23810847 (Version 1)
Quarter: 2024Q2

REPORT INFORMATION
  Report Type: Spontaneous
  Country: IL (occurrence: None)
  Receive Date: 20240502
  Receipt Date: 20240502
  Transmission Date: 20240716
  Serious: Yes (Other)
  Sender: FDA-Public Use
  Company Number: 2024A099251

PATIENT
  Age: 56 Year
  Sex: Male

DRUGS (1)
  1. CRESTOR [Suspect]
     Active Substance: ROSUVASTATIN CALCIUM
     Route: 048
     Dates: start: 20230101

REACTIONS (6)
  - Cough [Unknown]
  - Pruritus [Unknown]
  - Myalgia [Unknown]
  - Sleep disorder [Unknown]
  - Depression [Unknown]
  - Hypoaesthesia [Unknown]
